FAERS Safety Report 12951703 (Version 2)
Quarter: 2016Q4

REPORT INFORMATION
  Report Type: Spontaneous
  Country: CN (occurrence: CN)
  Receive Date: 20161117
  Receipt Date: 20161221
  Transmission Date: 20170207
  Serious: Yes (Other)
  Sender: FDA-Public Use
  Company Number: CN-JNJFOC-20161111422

PATIENT

DRUGS (1)
  1. RISPERIDONE. [Suspect]
     Active Substance: RISPERIDONE
     Indication: SCHIZOPHRENIA
     Dosage: APPROX 408.89 MG, DRUG DOSAGE ARE CONVERTED INTO CHLORPROMAZINE DOSE. FOR ATLEAST 6 MONTHS
     Route: 065

REACTIONS (11)
  - Blood prolactin increased [Unknown]
  - Blood glucose increased [Unknown]
  - Oestradiol decreased [Unknown]
  - Blood cholesterol increased [Unknown]
  - High turnover osteopathy [Unknown]
  - Blood testosterone increased [Unknown]
  - Low density lipoprotein increased [Unknown]
  - Body mass index increased [Unknown]
  - High density lipoprotein decreased [Unknown]
  - Blood triglycerides increased [Unknown]
  - Blood insulin increased [Unknown]
